FAERS Safety Report 13800732 (Version 1)
Quarter: 2017Q3

REPORT INFORMATION
  Report Type: Spontaneous
  Country: US (occurrence: US)
  Receive Date: 20170727
  Receipt Date: 20170727
  Transmission Date: 20171127
  Serious: No
  Sender: FDA-Public Use
  Company Number: US-SHIRE-US201714820

PATIENT

DRUGS (2)
  1. VYVANSE [Suspect]
     Active Substance: LISDEXAMFETAMINE DIMESYLATE
     Indication: PRODUCT USED FOR UNKNOWN INDICATION
     Dosage: 60 MG (2 30MG TABLETS), 1X/DAY:QD
  2. VYVANSE [Suspect]
     Active Substance: LISDEXAMFETAMINE DIMESYLATE
     Dosage: 40 MG (2 20MG TABLETS), EVERY 5-6 HOURS
     Route: 065

REACTIONS (3)
  - Fatigue [Unknown]
  - Inappropriate schedule of drug administration [Unknown]
  - Insomnia [Unknown]
